FAERS Safety Report 23960960 (Version 1)
Quarter: 2024Q2

REPORT INFORMATION
  Report Type: Spontaneous
  Country: US (occurrence: None)
  Receive Date: 20240609
  Receipt Date: 20240609
  Transmission Date: 20240717
  Serious: Yes (Disabling, Other)
  Sender: FDA-Public Use
  Company Number: None

PATIENT
  Age: 24 Year
  Sex: Male
  Weight: 143.55 kg

DRUGS (3)
  1. LEVETIRACETAM [Suspect]
     Active Substance: LEVETIRACETAM
  2. ZOLOFT [Concomitant]
     Active Substance: SERTRALINE HYDROCHLORIDE
  3. KEPPRA [Concomitant]
     Active Substance: LEVETIRACETAM

REACTIONS (7)
  - Agitation [None]
  - Paranoia [None]
  - Mutism [None]
  - Parkinsonian gait [None]
  - Hostility [None]
  - Aggression [None]
  - Anxiety [None]

NARRATIVE: CASE EVENT DATE: 20190205
